FAERS Safety Report 12530661 (Version 1)
Quarter: 2016Q3

REPORT INFORMATION
  Report Type: Spontaneous
  Country: US (occurrence: None)
  Receive Date: 20160705
  Receipt Date: 20160705
  Transmission Date: 20161109
  Serious: Yes (Hospitalization)
  Sender: FDA-Public Use
  Company Number: None

PATIENT
  Age: 35 Year
  Sex: Female
  Weight: 84.6 kg

DRUGS (1)
  1. CISPLATIN. [Suspect]
     Active Substance: CISPLATIN
     Dates: end: 20160622

REACTIONS (9)
  - Clostridium test positive [None]
  - Gastrointestinal haemorrhage [None]
  - Chills [None]
  - Proctalgia [None]
  - Vomiting [None]
  - Hypokalaemia [None]
  - White blood cell count decreased [None]
  - Pyrexia [None]
  - Salmonella test positive [None]

NARRATIVE: CASE EVENT DATE: 20160626
